FAERS Safety Report 9647292 (Version 2)
Quarter: 2013Q4

REPORT INFORMATION
  Report Type: Spontaneous
  Country: GB (occurrence: US)
  Receive Date: 20131027
  Receipt Date: 20131027
  Transmission Date: 20140711
  Serious: Yes (Other)
  Sender: FDA-Public Use
  Company Number: GB-NAPPMUNDI-USA-2013-0106752

PATIENT
  Sex: 0

DRUGS (2)
  1. OXYCODONE HYDROCHLORIDE (SIMILAR TO NDA 22-272) [Suspect]
     Indication: DRUG ABUSE
     Dosage: UNK, SEE TEXT
     Route: 048
     Dates: start: 201309
  2. VICODIN [Suspect]
     Indication: DRUG ABUSE

REACTIONS (1)
  - Drug abuse [Unknown]
